FAERS Safety Report 8017347-2 (Version None)
Quarter: 2012Q1

REPORT INFORMATION
  Report Type: 
  Country: None (occurrence: None)
  Receive Date: 20120102
  Receipt Date: 20111222
  Transmission Date: 20120608
  Serious: Yes (Hospitalization)
  Sender: FDA-Public Use
  Company Number: BE-ROCHE-1022110

PATIENT
  Sex: Male

DRUGS (10)
  1. NAPROSYN [Concomitant]
     Dates: start: 20110715
  2. CALCIUM CARBONATE [Concomitant]
     Dates: start: 20071210
  3. D-CURE [Concomitant]
     Dates: start: 20071210
  4. OMEPRAZOLE [Concomitant]
     Dates: start: 20100503
  5. ZYRTEC [Concomitant]
     Dates: start: 20090204
  6. SOMATROPIN RDNA [Concomitant]
     Dates: start: 20100527
  7. ACETAMINOPHEN [Concomitant]
     Dosage: TDD PRN
     Dates: start: 20080110
  8. ACTEMRA [Suspect]
     Indication: JUVENILE ARTHRITIS
     Dosage: DATE OF LAST DOSE PRIOR TO SAE 14 DEC 2011, TEMPORARILY INTERUPTED.
     Route: 042
     Dates: end: 20111214
  9. ACTEMRA [Suspect]
     Indication: JUVENILE ARTHRITIS
     Route: 042
     Dates: start: 20090204
  10. ATARAX [Concomitant]
     Dosage: TDD PRN
     Dates: start: 20110608

REACTIONS (2)
  - PYREXIA [None]
  - SPLENOMEGALY [None]
